FAERS Safety Report 18005603 (Version 1)
Quarter: 2020Q3

REPORT INFORMATION
  Report Type: Spontaneous
  Country: US (occurrence: US)
  Receive Date: 20200709
  Receipt Date: 20200709
  Transmission Date: 20201103
  Serious: No
  Sender: FDA-Public Use
  Company Number: None

PATIENT
  Age: 69 Year
  Sex: Female

DRUGS (1)
  1. VANCOMYCIN HYDROCHLORIDE 1GM FRESENIUS KABI USA [Suspect]
     Active Substance: VANCOMYCIN HYDROCHLORIDE
     Indication: SEPSIS
     Route: 042
     Dates: start: 20200506, end: 20200709

REACTIONS (4)
  - Skin disorder [None]
  - Pruritus [None]
  - Eosinophil count increased [None]
  - Drug reaction with eosinophilia and systemic symptoms [None]

NARRATIVE: CASE EVENT DATE: 20200709
